FAERS Safety Report 9263740 (Version 1)
Quarter: 2013Q2

REPORT INFORMATION
  Report Type: Spontaneous
  Country: AU (occurrence: AU)
  Receive Date: 20130430
  Receipt Date: 20130430
  Transmission Date: 20140414
  Serious: Yes (Hospitalization)
  Sender: FDA-Public Use
  Company Number: PHHY2013AU041515

PATIENT
  Sex: Male

DRUGS (2)
  1. TEGRETOL CR [Suspect]
     Dosage: 800 MG, DAILY
  2. TEGRETOL CR [Suspect]
     Dosage: 1200 MG PLUS 800 MG, UNK

REACTIONS (3)
  - Incorrect dose administered [Unknown]
  - Ataxia [Unknown]
  - Sedation [Unknown]
